FAERS Safety Report 4684942-8 (Version None)
Quarter: 2005Q2

REPORT INFORMATION
  Report Type: 
  Country: None (occurrence: None)
  Receive Date: 20050603
  Receipt Date: 20050523
  Transmission Date: 20051028
  Serious: Yes (Hospitalization)
  Sender: FDA-Public Use
  Company Number: 2005-128522-NL

PATIENT
  Age: 40 Year
  Sex: Female

DRUGS (1)
  1. NUVARING [Suspect]
     Indication: CONTRACEPTION
     Dosage: DF VAGINAL
     Route: 067
     Dates: start: 20050101

REACTIONS (1)
  - CEREBROVASCULAR ACCIDENT [None]
